FAERS Safety Report 24068603 (Version 1)
Quarter: 2024Q3

REPORT INFORMATION
  Report Type: Report from Study
  Country: US (occurrence: US)
  Receive Date: 20240710
  Receipt Date: 20240710
  Transmission Date: 20241016
  Serious: No
  Sender: ROCHE
  Company Number: US-ROCHE-3506439

PATIENT
  Age: 77 Year
  Sex: Female

DRUGS (25)
  1. VABYSMO [Suspect]
     Active Substance: FARICIMAB\FARICIMAB-SVOA
     Indication: Neovascular age-related macular degeneration
     Dosage: ANTICIPATED DATE OF TREATMENT: 23/APR/2024
     Route: 065
  2. VABYSMO [Suspect]
     Active Substance: FARICIMAB\FARICIMAB-SVOA
     Indication: Choroidal neovascularisation
  3. AVASTIN [Suspect]
     Active Substance: BEVACIZUMAB
     Indication: Neovascular age-related macular degeneration
     Route: 065
  4. AVASTIN [Suspect]
     Active Substance: BEVACIZUMAB
     Indication: Choroidal neovascularisation
  5. ALBUTEROL [Concomitant]
     Active Substance: ALBUTEROL
  6. AMLODIPINE [Concomitant]
     Active Substance: AMLODIPINE BESYLATE
  7. ANASTROZOLE [Concomitant]
     Active Substance: ANASTROZOLE
  8. ASPIRIN [Concomitant]
     Active Substance: ASPIRIN
  9. BREO ELLIPTA [Concomitant]
     Active Substance: FLUTICASONE FUROATE\VILANTEROL TRIFENATATE
  10. CLARITIN [Concomitant]
     Active Substance: LORATADINE
  11. ESCITALOPRAM OXALATE [Concomitant]
     Active Substance: ESCITALOPRAM OXALATE
  12. FAMOTIDINE [Concomitant]
     Active Substance: FAMOTIDINE
  13. FLUOCINONIDE [Concomitant]
     Active Substance: FLUOCINONIDE
  14. GLIMEPIRIDE [Concomitant]
     Active Substance: GLIMEPIRIDE
  15. HYDROXYZINE HYDROCHLORIDE [Concomitant]
     Active Substance: HYDROXYZINE HYDROCHLORIDE
  16. LABETALOL [Concomitant]
     Active Substance: LABETALOL\LABETALOL HYDROCHLORIDE
  17. LEVOTHYROXINE [Concomitant]
     Active Substance: LEVOTHYROXINE\LEVOTHYROXINE SODIUM
  18. LIPITOR [Concomitant]
     Active Substance: ATORVASTATIN CALCIUM
  19. LOSARTAN [Concomitant]
     Active Substance: LOSARTAN
  20. MONTELUKAST [Concomitant]
     Active Substance: MONTELUKAST SODIUM
  21. OXYBUTYNIN [Concomitant]
     Active Substance: OXYBUTYNIN\OXYBUTYNIN CHLORIDE
  22. PANTOPRAZOLE [Concomitant]
     Active Substance: PANTOPRAZOLE
  23. PLAVIX [Concomitant]
     Active Substance: CLOPIDOGREL BISULFATE
  24. SPIRONOLACTONE [Concomitant]
     Active Substance: SPIRONOLACTONE
  25. THEOPHYLLINE [Concomitant]
     Active Substance: THEOPHYLLINE

REACTIONS (2)
  - Off label use [Unknown]
  - No adverse event [Unknown]
